FAERS Safety Report 24628819 (Version 1)
Quarter: 2024Q4

REPORT INFORMATION
  Report Type: Spontaneous
  Country: KR (occurrence: KR)
  Receive Date: 20241118
  Receipt Date: 20241118
  Transmission Date: 20250115
  Serious: Yes (Other)
  Sender: COLLEGIUM PHARMACEUTICAL
  Company Number: KR-JNJFOC-20241101172

PATIENT
  Sex: Female
  Weight: 44 kg

DRUGS (1)
  1. NUCYNTA [Suspect]
     Active Substance: TAPENTADOL HYDROCHLORIDE
     Indication: Evidence based treatment
     Dosage: 1 DOSAGE FORM, 1/DAY
     Route: 065
     Dates: start: 20230616

REACTIONS (2)
  - Dreamy state [Recovered/Resolved]
  - Hallucination, visual [Recovered/Resolved]

NARRATIVE: CASE EVENT DATE: 20230616
